FAERS Safety Report 7558087-3 (Version None)
Quarter: 2011Q2

REPORT INFORMATION
  Report Type: 
  Country: None (occurrence: None)
  Receive Date: 20110620
  Receipt Date: 20110614
  Transmission Date: 20111010
  Serious: Yes (Other)
  Sender: FDA-Public Use
  Company Number: PHHY2011ES36015

PATIENT
  Age: 14 Year
  Sex: Female

DRUGS (1)
  1. FLECAINIDE ACETATE [Suspect]
     Dosage: 800 MG, UNK

REACTIONS (3)
  - ELECTROCARDIOGRAM ABNORMAL [None]
  - SUICIDE ATTEMPT [None]
  - OVERDOSE [None]
